FAERS Safety Report 6604170-6 (Version None)
Quarter: 2010Q1

REPORT INFORMATION
  Report Type: 
  Country: None (occurrence: None)
  Receive Date: 20100226
  Receipt Date: 20090706
  Transmission Date: 20100710
  Serious: No
  Sender: FDA-Public Use
  Company Number: A0792072A

PATIENT
  Age: 40 Year
  Sex: Female
  Weight: 172.7 kg

DRUGS (1)
  1. LAMICTAL CD [Suspect]
     Indication: DRUG USE FOR UNKNOWN INDICATION
     Route: 065

REACTIONS (8)
  - ARTHRALGIA [None]
  - BURNING SENSATION [None]
  - HYPERSENSITIVITY [None]
  - MYALGIA [None]
  - PYREXIA [None]
  - RASH [None]
  - RASH PRURITIC [None]
  - TINNITUS [None]
